FAERS Safety Report 12436200 (Version 2)
Quarter: 2016Q2

REPORT INFORMATION
  Report Type: Report from Study
  Country: US (occurrence: US)
  Receive Date: 20160605
  Receipt Date: 20160613
  Transmission Date: 20160815
  Serious: Yes (Death)
  Sender: FDA-Public Use
  Company Number: US-BIOGEN-2016BI00243875

PATIENT
  Age: 62 Year
  Sex: Male

DRUGS (3)
  1. AVONEX [Suspect]
     Active Substance: INTERFERON BETA-1A
     Indication: MULTIPLE SCLEROSIS
     Route: 030
     Dates: start: 19970101, end: 20071017
  2. BETASERON [Concomitant]
     Active Substance: INTERFERON BETA-1B
     Indication: MULTIPLE SCLEROSIS
     Route: 058
  3. AVONEX [Suspect]
     Active Substance: INTERFERON BETA-1A
     Route: 030
     Dates: start: 20071024, end: 20150201

REACTIONS (13)
  - Blood pressure decreased [Fatal]
  - Scoliosis [Not Recovered/Not Resolved]
  - Wound [Recovered/Resolved]
  - Hemiplegia [Not Recovered/Not Resolved]
  - Bladder dysfunction [Fatal]
  - Seizure [Recovered/Resolved]
  - Rheumatoid arthritis [Not Recovered/Not Resolved]
  - Aspiration [Not Recovered/Not Resolved]
  - Cognitive disorder [Fatal]
  - Peripheral swelling [Recovered/Resolved]
  - Multiple organ dysfunction syndrome [Fatal]
  - Functional gastrointestinal disorder [Fatal]
  - Arthritis infective [Recovered/Resolved]

NARRATIVE: CASE EVENT DATE: 2000
